FAERS Safety Report 23368056 (Version 1)
Quarter: 2024Q1

REPORT INFORMATION
  Report Type: Spontaneous
  Country: FR (occurrence: FR)
  Receive Date: 20240105
  Receipt Date: 20240105
  Transmission Date: 20240410
  Serious: Yes (Death, Hospitalization)
  Sender: FDA-Public Use
  Company Number: None

PATIENT
  Age: 71 Year
  Sex: Male
  Weight: 80 kg

DRUGS (2)
  1. DALBAVANCIN HYDROCHLORIDE [Suspect]
     Active Substance: DALBAVANCIN HYDROCHLORIDE
     Indication: Osteitis
     Dosage: FORM STRENGTH: 500 MILLIGRAM?DISCONTINUED IN NOV 2023
     Route: 042
     Dates: start: 20231107
  2. DALBAVANCIN HYDROCHLORIDE [Suspect]
     Active Substance: DALBAVANCIN HYDROCHLORIDE
     Indication: Osteitis
     Dosage: FORM STRENGTH: 500 MILLIGRAM
     Route: 042
     Dates: start: 20231122

REACTIONS (3)
  - Death [Fatal]
  - Eosinophilia [Unknown]
  - Erythema [Recovered/Resolved]

NARRATIVE: CASE EVENT DATE: 20231122
